FAERS Safety Report 8014927-5 (Version None)
Quarter: 2011Q4

REPORT INFORMATION
  Report Type: 
  Country: None (occurrence: None)
  Receive Date: 20111229
  Receipt Date: 20111227
  Transmission Date: 20120403
  Serious: Yes (Death)
  Sender: FDA-Public Use
  Company Number: US-ROCHE-1021515

PATIENT
  Sex: Male
  Weight: 92.389 kg

DRUGS (11)
  1. HYDROCODONE BITARTRATE AND ACETAMINOPHEN [Concomitant]
     Dosage: DOSE 5 MG/500 MG
  2. LORAZEPAM [Concomitant]
  3. AVASTIN [Suspect]
     Indication: OESOPHAGEAL ADENOCARCINOMA
     Route: 042
     Dates: start: 20111209
  4. MULTI-VITAMIN [Concomitant]
  5. XELODA [Suspect]
     Indication: OESOPHAGEAL ADENOCARCINOMA
     Route: 048
     Dates: start: 20111209
  6. PANTOPRAZOLE SODIUM [Concomitant]
  7. DOCUSATE SODIUM [Concomitant]
  8. CALCIUM CARBONATE/VITAMIN D NOS [Concomitant]
  9. FISH OIL [Concomitant]
  10. IBUPROFEN [Concomitant]
  11. OXALIPLATIN [Suspect]
     Indication: OESOPHAGEAL ADENOCARCINOMA
     Route: 042
     Dates: start: 20111209

REACTIONS (1)
  - DEATH [None]
